FAERS Safety Report 8796812 (Version 2)
Quarter: 2012Q4

REPORT INFORMATION
  Report Type: 
  Country: US (occurrence: US)
  Receive Date: 20120917
  Receipt Date: 20120927
  Transmission Date: 20130627
  Serious: Yes (Other)
  Sender: FDA-Public Use
  Company Number: US-ASTRAZENECA-2012SE70936

PATIENT
  Age: 55 Year
  Sex: Female

DRUGS (3)
  1. RHINOCORT AQUA [Suspect]
     Dosage: FOUR SPRAY TWICE DAILY IN EACH NOSTRIL
     Route: 045
  2. RHINOCORT AQUA [Suspect]
     Dosage: TWO SPRAY TWICE DAILY IN EACH NOSTRIL
     Route: 045
  3. FLONASE [Suspect]
     Route: 065

REACTIONS (7)
  - Haemoptysis [Unknown]
  - Feeling abnormal [Unknown]
  - Malaise [Unknown]
  - Multiple allergies [Unknown]
  - Epistaxis [Unknown]
  - Intentional drug misuse [Unknown]
  - Drug dose omission [Unknown]
